FAERS Safety Report 18213058 (Version 1)
Quarter: 2020Q3

REPORT INFORMATION
  Report Type: Spontaneous
  Country: US (occurrence: US)
  Receive Date: 20200829
  Receipt Date: 20200829
  Transmission Date: 20201103
  Serious: Yes (Other)
  Sender: FDA-Public Use
  Company Number: None

PATIENT
  Age: 72 Year
  Sex: Male
  Weight: 78.75 kg

DRUGS (11)
  1. AMLODIPINE [Concomitant]
     Active Substance: AMLODIPINE BESYLATE
  2. ONGLYZA [Concomitant]
     Active Substance: SAXAGLIPTIN HYDROCHLORIDE
  3. ACTOS/METFORMI [Concomitant]
  4. ZINC. [Concomitant]
     Active Substance: ZINC
  5. ROSUVASTATIN. [Concomitant]
     Active Substance: ROSUVASTATIN
  6. FINOFIBRATE [Concomitant]
     Active Substance: FENOFIBRATE
  7. GLYBURIDE. [Concomitant]
     Active Substance: GLYBURIDE
  8. VITAMIN D [Concomitant]
     Active Substance: VITAMIN D NOS
  9. BABY ASPIRIN [Concomitant]
     Active Substance: ASPIRIN
  10. VASCEPA [Suspect]
     Active Substance: ICOSAPENT ETHYL
     Indication: BLOOD TRIGLYCERIDES INCREASED
     Dosage: ?          QUANTITY:120 TABLET(S);?
     Route: 048
     Dates: start: 20190731, end: 20190830
  11. LOSARTAN. [Concomitant]
     Active Substance: LOSARTAN

REACTIONS (2)
  - Balance disorder [None]
  - Diarrhoea [None]

NARRATIVE: CASE EVENT DATE: 20200731
